FAERS Safety Report 8197890-6 (Version None)
Quarter: 2012Q1

REPORT INFORMATION
  Report Type: 
  Country: None (occurrence: None)
  Receive Date: 20120309
  Receipt Date: 20120302
  Transmission Date: 20120608
  Serious: Yes (Death, Hospitalization)
  Sender: FDA-Public Use
  Company Number: FR-UCBSA-052625

PATIENT
  Age: 89 Year
  Sex: Female

DRUGS (2)
  1. LASIX [Suspect]
     Route: 048
     Dates: end: 20120207
  2. KEPPRA [Suspect]
     Route: 048
     Dates: start: 20100801, end: 20120203

REACTIONS (2)
  - PURPURA [None]
  - DEATH [None]
